FAERS Safety Report 11025402 (Version 2)
Quarter: 2015Q2

REPORT INFORMATION
  Report Type: Spontaneous
  Country: JP (occurrence: JP)
  Receive Date: 20150414
  Receipt Date: 20150504
  Transmission Date: 20150821
  Serious: Yes (Hospitalization, Other)
  Sender: FDA-Public Use
  Company Number: JP-SUN PHARMACEUTICAL INDUSTRIES LTD-2015RR-95493

PATIENT
  Sex: Female

DRUGS (13)
  1. TIPEPIDINE HIBENZATE [Concomitant]
     Active Substance: TIPEPIDINE HIBENZATE
     Indication: NASOPHARYNGITIS
  2. DIHYDROCODEINE [Suspect]
     Active Substance: DIHYDROCODEINE
     Indication: COUGH
     Dosage: UNK
     Route: 065
  3. TIPEPIDINE HIBENZATE [Concomitant]
     Active Substance: TIPEPIDINE HIBENZATE
     Indication: COUGH
     Dosage: UNK
     Route: 065
  4. TULOBUTEROL [Concomitant]
     Active Substance: TULOBUTEROL
     Indication: NASOPHARYNGITIS
  5. DEXTROMETHORPHAN HYDROBROMIDE HYDRATE [Concomitant]
     Indication: COUGH
     Dosage: UNK
     Route: 065
  6. AMOXICILLIN HYDRATE [Concomitant]
     Active Substance: AMOXICILLIN
     Indication: COUGH
     Dosage: UNK
     Route: 065
  7. AMOXICILLIN HYDRATE [Concomitant]
     Active Substance: AMOXICILLIN
     Indication: NASOPHARYNGITIS
  8. CLARITHROMYCIN. [Concomitant]
     Active Substance: CLARITHROMYCIN
     Indication: NASOPHARYNGITIS
  9. TULOBUTEROL [Concomitant]
     Active Substance: TULOBUTEROL
     Indication: COUGH
     Dosage: UNK
     Route: 065
  10. DIHYDROCODEINE [Suspect]
     Active Substance: DIHYDROCODEINE
     Indication: NASOPHARYNGITIS
  11. DIHYDROCODEINE [Suspect]
     Active Substance: DIHYDROCODEINE
     Indication: ALLERGY TEST
     Dosage: 1/10 THERAPEUTIC DOSE
     Route: 048
  12. DEXTROMETHORPHAN HYDROBROMIDE HYDRATE [Concomitant]
     Indication: NASOPHARYNGITIS
  13. CLARITHROMYCIN. [Concomitant]
     Active Substance: CLARITHROMYCIN
     Indication: COUGH
     Dosage: UNK
     Route: 065

REACTIONS (2)
  - Acute generalised exanthematous pustulosis [Recovered/Resolved]
  - Skin reaction [Recovered/Resolved]
